FAERS Safety Report 26115617 (Version 1)
Quarter: 2025Q4

REPORT INFORMATION
  Report Type: Spontaneous
  Country: EU (occurrence: EU)
  Receive Date: 20251203
  Receipt Date: 20251203
  Transmission Date: 20260117
  Serious: Yes (Other)
  Sender: GLAXOSMITHKLINE
  Company Number: EU-NEURAXPHARM PHARMACEUTICALS, S.L-DE-NEU-25-114792

PATIENT
  Age: 28 Year
  Sex: Male

DRUGS (3)
  1. BUPROPION [Suspect]
     Active Substance: BUPROPION
     Indication: Attention deficit hyperactivity disorder
     Dosage: 150 MG, QD
  2. BUPROPION [Suspect]
     Active Substance: BUPROPION
     Dosage: 150 MG, QOD (EVERY OTHER DAY)
  3. BUPROPION [Suspect]
     Active Substance: BUPROPION
     Dosage: 150 MG (EVERY TWO DAYS)

REACTIONS (8)
  - Tunnel vision [Recovered/Resolved]
  - Mental impairment [Recovered/Resolved]
  - Head discomfort [Recovered/Resolved]
  - Heart rate increased [Recovered/Resolved]
  - Disturbance in attention [Recovered/Resolved]
  - Restlessness [Recovered/Resolved]
  - Therapeutic product effect decreased [Unknown]
  - Product use in unapproved indication [Unknown]
